FAERS Safety Report 24113660 (Version 3)
Quarter: 2024Q3

REPORT INFORMATION
  Report Type: Report from Study
  Country: CA (occurrence: CA)
  Receive Date: 20240720
  Receipt Date: 20240904
  Transmission Date: 20241017
  Serious: Yes (Hospitalization, Other)
  Sender: JOHNSON AND JOHNSON
  Company Number: CA-JNJFOC-20240559995

PATIENT
  Age: 31 Year
  Sex: Female

DRUGS (2)
  1. REMICADE [Suspect]
     Active Substance: INFLIXIMAB
     Indication: Ankylosing spondylitis
     Dosage: EXPIRY: MR/2026:EXPIRY, OCT-2026
     Route: 041
     Dates: start: 20200210
  2. REMICADE [Suspect]
     Active Substance: INFLIXIMAB
     Route: 041
     Dates: start: 20200210

REACTIONS (8)
  - Clostridium difficile infection [Recovering/Resolving]
  - Dehydration [Recovered/Resolved]
  - Escherichia urinary tract infection [Recovered/Resolved]
  - Vomiting [Recovered/Resolved]
  - Diarrhoea [Recovered/Resolved]
  - Endometriosis [Recovered/Resolved]
  - Blood potassium decreased [Recovered/Resolved]
  - Nausea [Recovered/Resolved]

NARRATIVE: CASE EVENT DATE: 20240515
